FAERS Safety Report 25183688 (Version 2)
Quarter: 2025Q2

REPORT INFORMATION
  Report Type: Spontaneous
  Country: GH (occurrence: GH)
  Receive Date: 20250410
  Receipt Date: 20250606
  Transmission Date: 20250717
  Serious: Yes (Other)
  Sender: PFIZER
  Company Number: GH-PFIZER INC-202500074182

PATIENT

DRUGS (1)
  1. FRAGMIN [Suspect]
     Active Substance: DALTEPARIN SODIUM
     Indication: Prophylaxis

REACTIONS (1)
  - Haematuria [Recovered/Resolved]
